FAERS Safety Report 4716403-1 (Version None)
Quarter: 2005Q3

REPORT INFORMATION
  Report Type: 
  Country: None (occurrence: None)
  Receive Date: 20050719
  Receipt Date: 20050713
  Transmission Date: 20060218
  Serious: Yes (Death)
  Sender: FDA-Public Use
  Company Number: AU-BOEHRINGER INGELHEIM PHARMACEUTICALS, INC.-2005-BP-11737AU

PATIENT
  Sex: Male
  Weight: 62 kg

DRUGS (1)
  1. TIPRANAVIR / RITONAVIR CAPSULES, SOFTGELATIN [Suspect]
     Indication: HIV INFECTION
     Route: 048
     Dates: start: 20050527, end: 20050621

REACTIONS (1)
  - CENTRAL NERVOUS SYSTEM LYMPHOMA [None]
